FAERS Safety Report 18853606 (Version 1)
Quarter: 2021Q1

REPORT INFORMATION
  Report Type: Spontaneous
  Country: DE (occurrence: DE)
  Receive Date: 20210205
  Receipt Date: 20210205
  Transmission Date: 20210420
  Serious: Yes (Hospitalization)
  Sender: FDA-Public Use
  Company Number: DE-PFIZER INC-2021082631

PATIENT
  Age: 32 Year
  Sex: Female

DRUGS (4)
  1. STELARA [Suspect]
     Active Substance: USTEKINUMAB
     Indication: COLITIS ULCERATIVE
     Dosage: UNK
     Route: 058
  2. REMICADE [Suspect]
     Active Substance: INFLIXIMAB
     Dosage: UNK
     Route: 042
  3. AZATHIOPRINE. [Suspect]
     Active Substance: AZATHIOPRINE
     Dosage: UNK
     Route: 065
  4. TOFACITINIB [Suspect]
     Active Substance: TOFACITINIB
     Dosage: UNK
     Route: 065

REACTIONS (5)
  - Therapeutic product ineffective [Unknown]
  - Diarrhoea [Unknown]
  - Haematochezia [Unknown]
  - Abdominal pain [Unknown]
  - Pyrexia [Unknown]
